FAERS Safety Report 14055971 (Version 1)
Quarter: 2017Q4

REPORT INFORMATION
  Report Type: Spontaneous
  Country: US (occurrence: US)
  Receive Date: 20171006
  Receipt Date: 20171006
  Transmission Date: 20180321
  Serious: Yes (Hospitalization)
  Sender: FDA-Public Use
  Company Number: US-BAYER-2017-187934

PATIENT
  Age: 19 Year
  Sex: Female

DRUGS (4)
  1. ACETYLSALICYLIC ACID({=100 MG) [Suspect]
     Active Substance: ASPIRIN
     Indication: IMMUNE TOLERANCE INDUCTION
  2. CROMOLYN [Concomitant]
     Active Substance: CROMOLYN
  3. HYDROXYUREA. [Concomitant]
     Active Substance: HYDROXYUREA
  4. KETOTIFEN [Concomitant]
     Active Substance: KETOTIFEN

REACTIONS (6)
  - Mastocytosis [Recovering/Resolving]
  - Hypotension [None]
  - Urticaria [None]
  - Mast cell degranulation present [None]
  - Drug hypersensitivity [None]
  - Drug ineffective [None]
